FAERS Safety Report 5586279-1 (Version None)
Quarter: 2008Q1

REPORT INFORMATION
  Report Type: 
  Country: None (occurrence: None)
  Receive Date: 20080108
  Receipt Date: 20080108
  Transmission Date: 20080703
  Serious: No
  Sender: FDA-Public Use
  Company Number: None

PATIENT
  Sex: Female
  Weight: 88.4514 kg

DRUGS (6)
  1. HYDROXYCHLOROQUINE [Suspect]
     Indication: SJOGREN'S SYNDROME
     Dosage: 200 MG PO BID
     Route: 048
     Dates: start: 20070830
  2. RESTASIS [Concomitant]
  3. AVANDAMET [Concomitant]
  4. EVOXAC [Concomitant]
  5. WELLBUTRIN [Concomitant]
  6. TRILEPTAL [Concomitant]

REACTIONS (2)
  - TREMOR [None]
  - VOMITING [None]
